FAERS Safety Report 9880458 (Version 1)
Quarter: 2014Q1

REPORT INFORMATION
  Report Type: Spontaneous
  Country: NO (occurrence: NO)
  Receive Date: 20140207
  Receipt Date: 20140207
  Transmission Date: 20141002
  Serious: Yes (Other)
  Sender: FDA-Public Use
  Company Number: NO-AMGEN-NORSP2014008544

PATIENT
  Age: 73 Year
  Sex: Female

DRUGS (11)
  1. ENBREL [Suspect]
     Indication: RHEUMATOID ARTHRITIS
     Dosage: UNK
     Route: 058
     Dates: start: 20110202, end: 20140124
  2. METHOTREXATE [Concomitant]
     Dosage: 3 TABLETS ON THE SAME DAY EVERY WEEK
     Route: 048
     Dates: start: 20101011
  3. SOBRIL [Concomitant]
     Dosage: 5MG, WHEN NECCESSARY
     Route: 048
  4. SIMVASTATIN [Concomitant]
     Dosage: 20MG 1X/DAY
     Route: 048
  5. CALCIGRAN FORTE [Concomitant]
     Dosage: UNK
     Route: 048
  6. PINEX FORTE [Concomitant]
     Dosage: 4 TABLETS DAILY
     Route: 048
  7. PREDNISOLON                        /00016201/ [Concomitant]
     Dosage: 5 MG, 1X/DAY
     Route: 048
     Dates: start: 20110202
  8. AFIPRAN [Concomitant]
     Dosage: 10MG, AS NECCESSARY
     Route: 048
  9. FOLSYRE NAF [Concomitant]
     Dosage: 1 TABLET DAILY, EXCEPT THE DAY METHOTREXATE IS ADMINISTERED
     Route: 048
  10. FOSAMAX [Concomitant]
     Dosage: 70MG, WEEKLY
     Route: 048
  11. ORUDIS [Concomitant]
     Dosage: 2-3 TIMES DAILY
     Route: 061

REACTIONS (2)
  - Metastases to liver [Not Recovered/Not Resolved]
  - Lung neoplasm malignant [Not Recovered/Not Resolved]
